FAERS Safety Report 19794960 (Version 6)
Quarter: 2021Q4

REPORT INFORMATION
  Report Type: Report from Study
  Country: JP (occurrence: JP)
  Receive Date: 20210907
  Receipt Date: 20211102
  Transmission Date: 20220303
  Serious: Yes (Hospitalization, Disabling, Other)
  Sender: FDA-Public Use
  Company Number: JP-BRISTOL-MYERS SQUIBB COMPANY-BMS-2021-083938

PATIENT
  Age: 66 Year
  Sex: Female

DRUGS (4)
  1. NIVOLUMAB [Suspect]
     Active Substance: NIVOLUMAB
     Indication: Non-small cell lung cancer recurrent
     Dosage: 360 MILLIGRAM
     Route: 041
     Dates: start: 20210622, end: 20210622
  2. IPILIMUMAB [Suspect]
     Active Substance: IPILIMUMAB
     Indication: Non-small cell lung cancer recurrent
     Dosage: 1 MILLIGRAM/KILOGRAM (34 MG)
     Route: 041
     Dates: start: 20210622, end: 20210622
  3. NAIXAN [NAPROXEN SODIUM] [Concomitant]
     Indication: Tumour associated fever
     Dosage: UNK
     Route: 048
  4. NAIXAN [NAPROXEN SODIUM] [Concomitant]
     Indication: Tumour inflammation

REACTIONS (3)
  - Loss of personal independence in daily activities [Unknown]
  - Cytomegalovirus enterocolitis [Recovering/Resolving]
  - Pneumonia [Recovering/Resolving]

NARRATIVE: CASE EVENT DATE: 20210630
